FAERS Safety Report 20984685 (Version 1)
Quarter: 2022Q2

REPORT INFORMATION
  Report Type: Spontaneous
  Country: US (occurrence: None)
  Receive Date: 20220621
  Receipt Date: 20220621
  Transmission Date: 20220721
  Serious: No
  Sender: FDA-Public Use
  Company Number: US-ROCHE-2931598

PATIENT
  Sex: Female

DRUGS (1)
  1. XELODA [Suspect]
     Active Substance: CAPECITABINE
     Indication: Bile duct cancer
     Route: 048
     Dates: start: 20210916, end: 202109

REACTIONS (3)
  - Nausea [Unknown]
  - Vomiting [Unknown]
  - Rash [Unknown]
